FAERS Safety Report 5214097-2 (Version None)
Quarter: 2007Q1

REPORT INFORMATION
  Report Type: 
  Country: None (occurrence: None)
  Receive Date: 20070122
  Receipt Date: 20070112
  Transmission Date: 20070707
  Serious: Yes (Other)
  Sender: FDA-Public Use
  Company Number: US-BAYER-200710134BCC

PATIENT
  Sex: Male
  Weight: 90 kg

DRUGS (2)
  1. ALEVE [Suspect]
     Indication: ARTHRALGIA
     Dosage: TOTAL DAILY DOSE: 220 MG  UNIT DOSE: 220 MG
     Route: 048
  2. LUMIGAN [Concomitant]

REACTIONS (2)
  - RETINAL VEIN OCCLUSION [None]
  - VISION BLURRED [None]
